FAERS Safety Report 9095052 (Version 1)
Quarter: 2013Q1

REPORT INFORMATION
  Report Type: Spontaneous
  Country: US (occurrence: None)
  Receive Date: 20130215
  Receipt Date: 20130215
  Transmission Date: 20140127
  Serious: Yes (Hospitalization, Other)
  Sender: FDA-Public Use
  Company Number: None

PATIENT
  Age: 28 Year
  Sex: Female
  Weight: 118.84 kg

DRUGS (1)
  1. DEVICE [Suspect]
     Indication: CONTRACEPTION
     Dates: start: 201208

REACTIONS (6)
  - Infection [None]
  - Bowel movement irregularity [None]
  - Dizziness [None]
  - Nausea [None]
  - Pain [None]
  - Procedural pain [None]
